FAERS Safety Report 6243162-6 (Version None)
Quarter: 2009Q2

REPORT INFORMATION
  Report Type: 
  Country: None (occurrence: None)
  Receive Date: 20090622
  Receipt Date: 20090622
  Transmission Date: 20091009
  Serious: No
  Sender: FDA-Public Use
  Company Number: None

PATIENT
  Sex: Male
  Weight: 94.3482 kg

DRUGS (1)
  1. NEW ZICAM COLD REMEDY ZINCUM GLUCONICUM 2X GEL TECH [Suspect]
     Indication: NASAL CONGESTION
     Dosage: 120 METERED DOSES NASAL
     Route: 045

REACTIONS (1)
  - ANOSMIA [None]
